FAERS Safety Report 8897081 (Version 1)
Quarter: 2012Q4

REPORT INFORMATION
  Report Type: 
  Country: US (occurrence: US)
  Receive Date: 20121108
  Receipt Date: 20121108
  Transmission Date: 20130627
  Serious: No
  Sender: FDA-Public Use
  Company Number: US-AMGEN-USASP2012025478

PATIENT
  Age: 58 Year
  Sex: Female
  Weight: 29.93 kg

DRUGS (9)
  1. ENBREL [Suspect]
     Indication: PRODUCT USED FOR UNKNOWN INDICATION
     Dosage: 50 mg, qwk
  2. AMLODIPINE [Concomitant]
     Dosage: 5 mg, UNK
  3. JANUVIA [Concomitant]
     Dosage: 25 mg, UNK
  4. LOVASTATIN [Concomitant]
     Dosage: 20 mg, UNK
  5. LISINOPRIL + HIDROCLOROTIAZIDA [Concomitant]
     Dosage: UNK
  6. METFORMIN [Concomitant]
     Dosage: 750 mg, UNK
  7. ASPIRIN [Concomitant]
     Dosage: 81 mg, UNK
  8. TEMOVATE [Concomitant]
     Dosage: 0.05 %, UNK
  9. CALCIUM [Concomitant]
     Dosage: UNK

REACTIONS (1)
  - Pharyngitis streptococcal [Unknown]
